FAERS Safety Report 8865066 (Version 1)
Quarter: 2012Q4

REPORT INFORMATION
  Report Type: 
  Country: US (occurrence: US)
  Receive Date: 20121024
  Receipt Date: 20121024
  Transmission Date: 20130627
  Serious: No
  Sender: FDA-Public Use
  Company Number: US-AMGEN-USASP2012000913

PATIENT
  Age: 52 Year
  Sex: Female

DRUGS (6)
  1. ENBREL [Suspect]
     Indication: PRODUCT USED FOR UNKNOWN INDICATION
     Dosage: 50 mg, 2 times/wk
     Route: 058
  2. PANTOPRAZOLE [Concomitant]
     Dosage: 20 mg, UNK
  3. LOSARTAN POTASSIUM [Concomitant]
     Dosage: 25 mg, UNK
  4. LEXAPRO [Concomitant]
     Dosage: 10 mg, UNK
  5. OXCARBAZEPINE [Concomitant]
     Dosage: 150 mg, UNK
  6. CYCLOSPORINE [Concomitant]
     Dosage: 100 mg, UNK

REACTIONS (2)
  - Hypersensitivity [Unknown]
  - Rash [Unknown]
